FAERS Safety Report 7455756-0 (Version None)
Quarter: 2011Q2

REPORT INFORMATION
  Report Type: 
  Country: None (occurrence: None)
  Receive Date: 20110503
  Receipt Date: 20110420
  Transmission Date: 20111010
  Serious: Yes (Other)
  Sender: FDA-Public Use
  Company Number: PHHY2011US33918

PATIENT
  Age: 54 Year
  Sex: Female
  Weight: 69 kg

DRUGS (3)
  1. MELOXICAM [Concomitant]
     Indication: OSTEOARTHRITIS
  2. OXAPROZIN [Suspect]
     Indication: OSTEOARTHRITIS
  3. RECLAST [Suspect]
     Indication: OSTEOARTHRITIS
     Dosage: UNK
     Route: 042

REACTIONS (1)
  - RHEUMATOID ARTHRITIS [None]
